FAERS Safety Report 20836593 (Version 2)
Quarter: 2022Q3

REPORT INFORMATION
  Report Type: Spontaneous
  Country: ES (occurrence: ES)
  Receive Date: 20220517
  Receipt Date: 20220716
  Transmission Date: 20221027
  Serious: Yes (Other)
  Sender: FDA-Public Use
  Company Number: None

PATIENT
  Age: 4 Year
  Sex: Male
  Weight: 14 kg

DRUGS (6)
  1. VINCRISTINE SULFATE [Suspect]
     Active Substance: VINCRISTINE SULFATE
     Indication: Precursor T-lymphoblastic leukaemia acute
     Dosage: VINCRISTINA SULFATO (809SU), FREQUENCY TIME: 1 TOTAL
     Route: 041
     Dates: start: 20220321
  2. REMDESIVIR [Suspect]
     Active Substance: REMDESIVIR
     Indication: COVID-19
     Dosage: REMDESIVIR (10009A), UNIT DOSE: 70 MG, FREQUENCY TIME : 1 TOTAL, DURATION :1 DAY
     Route: 042
     Dates: start: 20220322, end: 20220322
  3. DAUNORUBICIN HYDROCHLORIDE [Suspect]
     Active Substance: DAUNORUBICIN HYDROCHLORIDE
     Indication: Precursor T-lymphoblastic leukaemia acute
     Dosage: DAUNORUBICINA HIDROCLORURO (177CH), FREQUENCY TIME : 1 TOTAL
     Route: 041
     Dates: start: 20220321
  4. HYDROCORTISONE [Concomitant]
     Active Substance: HYDROCORTISONE
     Indication: Precursor T-lymphoblastic leukaemia acute
     Dosage: HIDROCORTISONA (54A), UNIT DOSE: 20 MG, FREQUENCY TIME: 1 CYCLICAL
     Route: 037
     Dates: start: 20220321
  5. CYTARABINE [Concomitant]
     Active Substance: CYTARABINE
     Indication: Precursor T-lymphoblastic leukaemia acute
     Dosage: CITARABINA (124A), UNIT DOSE: 30 MG, FREQUENCY TIME: 1 CYCLICAL
     Route: 037
     Dates: start: 20220321
  6. METHOTREXATE (METHOTREXATE SODIUM) [Concomitant]
     Active Substance: METHOTREXATE SODIUM
     Indication: Precursor T-lymphoblastic leukaemia acute
     Dosage: METOTREXATO (418A), UNIT DOSE: 12 MG, FREQUENCY TIME: 1 CYCLICAL
     Route: 037
     Dates: start: 20220321

REACTIONS (2)
  - Hyperbilirubinaemia [Recovered/Resolved]
  - Hepatocellular injury [Recovered/Resolved]

NARRATIVE: CASE EVENT DATE: 20220323
